FAERS Safety Report 5314747-6 (Version None)
Quarter: 2007Q2

REPORT INFORMATION
  Report Type: 
  Country: None (occurrence: None)
  Receive Date: 20070502
  Receipt Date: 20070423
  Transmission Date: 20071010
  Serious: Yes (Hospitalization)
  Sender: FDA-Public Use
  Company Number: US-ABBOTT-07P-163-0365991-00

PATIENT
  Sex: Female
  Weight: 68.1 kg

DRUGS (5)
  1. HUMIRA [Suspect]
     Indication: RHEUMATOID ARTHRITIS
     Route: 058
     Dates: start: 20050101, end: 20060801
  2. HUMIRA [Suspect]
     Route: 058
     Dates: start: 20070401
  3. LEFLUNOMIDE [Suspect]
     Indication: RHEUMATOID ARTHRITIS
     Route: 048
     Dates: start: 20070101, end: 20070425
  4. LEFLUNOMIDE [Suspect]
     Route: 048
     Dates: start: 20070425
  5. TRAZODONE HCL [Concomitant]
     Indication: INSOMNIA
     Route: 048

REACTIONS (6)
  - ALOPECIA [None]
  - CHEST PAIN [None]
  - COSTOCHONDRITIS [None]
  - FALL [None]
  - PAINFUL RESPIRATION [None]
  - RASH [None]
